FAERS Safety Report 9566412 (Version 2)
Quarter: 2013Q4

REPORT INFORMATION
  Report Type: Spontaneous
  Country: US (occurrence: US)
  Receive Date: 20130930
  Receipt Date: 20131014
  Transmission Date: 20140711
  Serious: Yes (Hospitalization, Other)
  Sender: FDA-Public Use
  Company Number: US-BAXTER-2013BAX037744

PATIENT
  Age: 49 Year
  Sex: Female

DRUGS (2)
  1. GAMMAGARD LIQUID [Suspect]
     Indication: MYASTHENIA GRAVIS
     Route: 042
     Dates: start: 201205, end: 201205
  2. GAMMAGARD LIQUID [Suspect]
     Indication: OFF LABEL USE

REACTIONS (1)
  - Meningitis aseptic [Recovered/Resolved]
